FAERS Safety Report 19142478 (Version 3)
Quarter: 2024Q1

REPORT INFORMATION
  Report Type: Spontaneous
  Country: GB (occurrence: GB)
  Receive Date: 20210416
  Receipt Date: 20240322
  Transmission Date: 20240410
  Serious: Yes (Hospitalization, Other)
  Sender: FDA-Public Use
  Company Number: GB-BAXTER-2021BAX005270

PATIENT
  Age: 48 Year
  Sex: Female
  Weight: 51.4 kg

DRUGS (24)
  1. ONDANSETRON [Suspect]
     Active Substance: ONDANSETRON
     Indication: Vomiting
     Dosage: UNK
     Route: 065
  2. ONDANSETRON [Suspect]
     Active Substance: ONDANSETRON
     Indication: Nausea
     Dosage: 8 MILLIGRAM, TWO TIMES A DAY
     Route: 048
     Dates: start: 20210220
  3. CARBOPLATIN [Suspect]
     Active Substance: CARBOPLATIN
     Indication: Ovarian cancer
     Dosage: FIRST 3 CYCLES; CARBOPLATIN + 5% GLUCOSE
     Route: 065
  4. CARBOPLATIN [Suspect]
     Active Substance: CARBOPLATIN
     Dosage: CYCLIC (FIRST 3 CYCLES; CARBOPLATIN + 5% GLUCOSE)
     Route: 065
  5. CARBOPLATIN [Suspect]
     Active Substance: CARBOPLATIN
     Dosage: UNK (4TH CYCLE)
     Route: 065
     Dates: start: 20210215
  6. CARBOPLATIN [Suspect]
     Active Substance: CARBOPLATIN
     Dosage: 450 MG, CYCLIC (4TH CYCLE; CARBOPLATIN 450 MG + 5% GLUCOSE 545 ML GIVEN OVER 1 HOUR)
     Route: 065
     Dates: start: 20210219
  7. DOXORUBICIN HYDROCHLORIDE [Suspect]
     Active Substance: DOXORUBICIN HYDROCHLORIDE
     Indication: Ovarian cancer
     Dosage: UNK (FIRST 3 CYCLES; CAELYX+5%GLUCOSE)
     Route: 065
  8. DOXORUBICIN HYDROCHLORIDE [Suspect]
     Active Substance: DOXORUBICIN HYDROCHLORIDE
     Dosage: 4TH CYCLE; ; DOSAGE STRENGTH 50 MG/25 ML
     Route: 065
     Dates: start: 20210215
  9. DOXORUBICIN HYDROCHLORIDE [Suspect]
     Active Substance: DOXORUBICIN HYDROCHLORIDE
     Dosage: 4TH CYCLE; ; DOSAGE STRENGTH 50 MG/25 ML
     Route: 065
     Dates: start: 20210219
  10. DEXAMETHASONE [Suspect]
     Active Substance: DEXAMETHASONE
     Indication: Nausea
     Dosage: UNK
     Route: 065
  11. DEXAMETHASONE [Suspect]
     Active Substance: DEXAMETHASONE
     Indication: Vomiting
     Dosage: 4 MILLIGRAM, ONCE A DAY
     Route: 048
     Dates: start: 20210220
  12. DOXIL [Suspect]
     Active Substance: DOXORUBICIN HYDROCHLORIDE
     Indication: Ovarian cancer
     Dosage: FIRST 3 CYCLES; CAELYX + 5% GLUCOSE
     Route: 065
  13. DOXIL [Suspect]
     Active Substance: DOXORUBICIN HYDROCHLORIDE
     Dosage: 50 MG, CYCLIC (4TH CYCLE; CAELYX 50 MG + 5% GLUCOSE 250 ML OVER 1 HOUR) 50MG / 25ML
     Route: 065
     Dates: start: 20210219
  14. DOXIL [Suspect]
     Active Substance: DOXORUBICIN HYDROCHLORIDE
     Dosage: CYCLIC (FIRST 3 CYCLES; CAELYX + 5% GLUCOSE) STRENGTH 50MG / 25ML
     Route: 065
  15. ANHYDROUS DEXTROSE [Suspect]
     Active Substance: ANHYDROUS DEXTROSE
     Indication: Medication dilution
     Dosage: FIRST 3 CYCLES; CAELYX + 5% GLUCOSE
     Route: 065
  16. ANHYDROUS DEXTROSE [Suspect]
     Active Substance: ANHYDROUS DEXTROSE
     Dosage: FIRST 3 CYCLES; CARBOPLATIN + 5% GLUCOSE
     Route: 065
  17. ANHYDROUS DEXTROSE [Suspect]
     Active Substance: ANHYDROUS DEXTROSE
     Dosage: 500 MILLILITER (4TH CYCLE; CARBOPLATIN 450 MG + 5% GLUCOSE 500 ML OVER 1 HOUR)
     Route: 065
     Dates: start: 20210219
  18. ANHYDROUS DEXTROSE [Suspect]
     Active Substance: ANHYDROUS DEXTROSE
     Dosage: 250 MILLILITER (4TH CYCLE; CAELYX 50 MG + 5% GLUCOSE 250 ML OVER 1 HOUR)
     Route: 065
     Dates: start: 20210219
  19. METOCLOPRAMIDE [Suspect]
     Active Substance: METOCLOPRAMIDE
     Indication: Vomiting
     Dosage: 10 MG, 3X/DAY; UPTO 3 TIMES A DAY, AS REQUIRED
     Route: 048
     Dates: start: 20201113
  20. METOCLOPRAMIDE [Suspect]
     Active Substance: METOCLOPRAMIDE
     Indication: Nausea
  21. TOZINAMERAN [Concomitant]
     Active Substance: TOZINAMERAN
     Indication: COVID-19 immunisation
     Dosage: SINGLE DOSE
     Route: 030
     Dates: start: 20210221, end: 20210221
  22. ACETAMINOPHEN [Concomitant]
     Active Substance: ACETAMINOPHEN
     Indication: Pain
     Dosage: 500 MG-1 G UPTO FOUR TIMES A DAY, AS REQUIRED; NOT KNOWN- LONG TERM, ONCE A DAY
     Route: 048
  23. ACETAMINOPHEN [Concomitant]
     Active Substance: ACETAMINOPHEN
     Dosage: 500 MG-1 G UPTO FOUR TIMES A DAY, AS REQUIRED; NOT KNOWN- LONG TERM
     Route: 048
  24. SARS-CoV-2 vaccine [Concomitant]
     Indication: COVID-19 prophylaxis
     Dosage: UNK
     Route: 030
     Dates: start: 20210221

REACTIONS (8)
  - Myelosuppression [Unknown]
  - Pancytopenia [Recovering/Resolving]
  - Neutropenic sepsis [Recovering/Resolving]
  - Mouth ulceration [Unknown]
  - Thrombocytopenia [Unknown]
  - Vitamin B12 deficiency [Unknown]
  - Anaemia [Unknown]
  - Folate deficiency [Unknown]

NARRATIVE: CASE EVENT DATE: 20210308
